FAERS Safety Report 21084339 (Version 1)
Quarter: 2022Q3

REPORT INFORMATION
  Report Type: Spontaneous
  Country: US (occurrence: US)
  Receive Date: 20220714
  Receipt Date: 20220714
  Transmission Date: 20221027
  Serious: No
  Sender: FDA-Public Use
  Company Number: US-JAZZ-2022-US-017241

PATIENT
  Sex: Female
  Weight: 32.2 kg

DRUGS (2)
  1. EPIDIOLEX [Suspect]
     Active Substance: CANNABIDIOL
     Indication: Lennox-Gastaut syndrome
     Dosage: 4.2 MILLILITER
     Route: 048
     Dates: start: 202202
  2. EPIDIOLEX [Suspect]
     Active Substance: CANNABIDIOL
     Dosage: 1.6 MILLILITER, BID
     Route: 048

REACTIONS (2)
  - White blood cell disorder [Unknown]
  - Red blood cell count abnormal [Unknown]
